FAERS Safety Report 11226486 (Version 6)
Quarter: 2016Q1

REPORT INFORMATION
  Report Type: Spontaneous
  Country: JP (occurrence: JP)
  Receive Date: 20150629
  Receipt Date: 20160120
  Transmission Date: 20160525
  Serious: Yes (Hospitalization, Disabling, Other)
  Sender: FDA-Public Use
  Company Number: JP-GILEAD-2015-0160516

PATIENT
  Age: 64 Year
  Sex: Male

DRUGS (1)
  1. HEPSERA [Suspect]
     Active Substance: ADEFOVIR DIPIVOXIL
     Indication: HEPATITIS B
     Dosage: UNK
     Route: 048

REACTIONS (8)
  - Positron emission tomogram abnormal [Unknown]
  - Osteoporosis [Unknown]
  - Femoral neck fracture [Recovering/Resolving]
  - Osteomalacia [Recovering/Resolving]
  - Stress fracture [Recovering/Resolving]
  - Blood phosphorus decreased [Unknown]
  - Fanconi syndrome acquired [Recovering/Resolving]
  - Arthralgia [Recovering/Resolving]
